FAERS Safety Report 11652404 (Version 3)
Quarter: 2015Q4

REPORT INFORMATION
  Report Type: Spontaneous
  Country: JP (occurrence: JP)
  Receive Date: 20151022
  Receipt Date: 20151201
  Transmission Date: 20160304
  Serious: Yes (Death, Hospitalization, Other)
  Sender: FDA-Public Use
  Company Number: JP-ELI_LILLY_AND_COMPANY-JP201510005860

PATIENT
  Age: 79 Year
  Sex: Female
  Weight: 53.85 kg

DRUGS (23)
  1. ZOMETA [Concomitant]
     Active Substance: ZOLEDRONIC ACID
     Indication: PROPHYLAXIS
     Dosage: 4 MG, UNK
     Route: 042
     Dates: start: 20120927, end: 20150916
  2. DEXART [Concomitant]
     Active Substance: DEXAMETHASONE SODIUM PHOSPHATE
     Indication: PROPHYLAXIS OF NAUSEA AND VOMITING
     Dosage: UNK
     Route: 042
     Dates: start: 20150916, end: 20150916
  3. FLUTIDE [Concomitant]
     Active Substance: FLUTICASONE PROPIONATE
     Indication: ASTHMA
     Dosage: 100 UG, BID
     Route: 055
     Dates: end: 20151003
  4. MAGNESIUM OXIDE. [Concomitant]
     Active Substance: MAGNESIUM OXIDE
     Indication: CONSTIPATION
     Dosage: 0.5 MG, TID
     Route: 048
     Dates: end: 20151001
  5. ETIZOLAM [Concomitant]
     Active Substance: ETIZOLAM
     Indication: ANXIETY DISORDER
     Dosage: 0.5 MG, BID
     Route: 048
     Dates: end: 20151001
  6. ALIMTA [Suspect]
     Active Substance: PEMETREXED DISODIUM
     Indication: METASTASES TO LUNG
     Dosage: 700 MG, UNK
     Route: 042
     Dates: start: 20150916, end: 20150916
  7. GRANISETRON                        /01178102/ [Concomitant]
     Active Substance: GRANISETRON
     Indication: PROPHYLAXIS OF NAUSEA AND VOMITING
     Dosage: UNK
     Route: 042
     Dates: start: 20150916, end: 20150916
  8. VITAMEDIN                          /00274301/ [Concomitant]
     Dosage: 25 MG, TID
     Route: 048
     Dates: end: 20150922
  9. MILICARETT [Concomitant]
     Indication: RHINITIS ALLERGIC
     Dosage: 50 UG, BID
     Route: 045
     Dates: end: 20151001
  10. PANVITAN                           /05664401/ [Concomitant]
     Indication: PROPHYLAXIS
     Dosage: 1 G, QD
     Route: 048
     Dates: start: 20150819, end: 20151003
  11. SINGULAIR [Concomitant]
     Active Substance: MONTELUKAST SODIUM
     Indication: ASTHMA
     Dosage: 10 MG, QD
     Route: 048
     Dates: end: 20151001
  12. SOLON                              /00958301/ [Concomitant]
     Indication: CHRONIC GASTRITIS
     Dosage: 0.5 G, TID
     Route: 048
     Dates: end: 20150922
  13. METHYCOBAL [Concomitant]
     Active Substance: METHYLCOBALAMIN
     Indication: PROPHYLAXIS
     Dosage: 1000 UG, UNK
     Route: 030
     Dates: start: 20150819, end: 20150819
  14. THYRADIN [Concomitant]
     Active Substance: LEVOTHYROXINE
     Indication: HYPOTHYROIDISM
     Dosage: 50 UG, QD
     Route: 048
     Dates: end: 20151003
  15. DILTIAZEM                          /00489702/ [Concomitant]
     Indication: SUPRAVENTRICULAR TACHYCARDIA
     Dosage: 100 MG, QD
     Route: 048
     Dates: end: 20150924
  16. FERROMIA [Concomitant]
     Active Substance: FERROUS CITRATE
     Indication: IRON DEFICIENCY ANAEMIA
     Dosage: 100 MG, QD
     Route: 048
     Dates: end: 20150922
  17. SENNOSIDE                          /00571901/ [Concomitant]
     Active Substance: SENNOSIDES A AND B
     Indication: CONSTIPATION
     Dosage: 24 MG, QD
     Route: 048
     Dates: end: 20151001
  18. DECADRON [Concomitant]
     Active Substance: DEXAMETHASONE
     Indication: PROPHYLAXIS
     Dosage: 2 MG, QD
     Route: 048
     Dates: start: 20150917, end: 20150919
  19. BISOPROLOL FUMARATE. [Concomitant]
     Active Substance: BISOPROLOL FUMARATE
     Indication: SUPRAVENTRICULAR TACHYCARDIA
     Dosage: 2.5 MG, QD
     Route: 048
     Dates: end: 20150924
  20. ONEALFA [Concomitant]
     Active Substance: ALFACALCIDOL
     Indication: OSTEOPOROSIS
     Dosage: 0.5 UG, QD
     Route: 048
     Dates: end: 20150922
  21. EVISTA [Concomitant]
     Active Substance: RALOXIFENE HYDROCHLORIDE
     Indication: OSTEOPOROSIS
     Dosage: 60 MG, QD
     Route: 048
     Dates: end: 20150922
  22. MEVALECT [Concomitant]
     Indication: HYPERLIPIDAEMIA
     Dosage: 10 MG, QD
     Route: 048
     Dates: end: 20150922
  23. KARY UNI                           /00528801/ [Concomitant]
     Active Substance: PIRENOXINE

REACTIONS (8)
  - Disseminated intravascular coagulation [Not Recovered/Not Resolved]
  - Sepsis [Fatal]
  - Thrombocytopenia [Not Recovered/Not Resolved]
  - Multi-organ failure [Fatal]
  - Septic shock [Fatal]
  - Oculomucocutaneous syndrome [Not Recovered/Not Resolved]
  - Diarrhoea [Not Recovered/Not Resolved]
  - Febrile neutropenia [Fatal]

NARRATIVE: CASE EVENT DATE: 201509
